FAERS Safety Report 5873924-6 (Version None)
Quarter: 2008Q3

REPORT INFORMATION
  Report Type: 
  Country: None (occurrence: None)
  Receive Date: 20080905
  Receipt Date: 20080905
  Transmission Date: 20090109
  Serious: No
  Sender: FDA-Public Use
  Company Number: None

PATIENT
  Sex: Female

DRUGS (12)
  1. RITUXIMAB [Suspect]
     Indication: NON-HODGKIN'S LYMPHOMA
     Dosage: 600 MG IV
     Route: 042
     Dates: start: 20080723, end: 20080723
  2. ACETAMINOPHEN [Concomitant]
  3. CYTARABINE [Concomitant]
  4. DEXAMETHASONE [Concomitant]
  5. DIPHENHYDRAMINE HCL [Concomitant]
  6. LEUCOVORIN CALCIUM [Concomitant]
  7. METHOTREXATE [Concomitant]
  8. ONDANSETRON [Concomitant]
  9. CYTARABINE [Concomitant]
  10. LORAZEPAM [Concomitant]
  11. METHOTREXATE [Concomitant]
  12. PROCHLORPERAZINE [Concomitant]

REACTIONS (1)
  - DYSPHAGIA [None]
